FAERS Safety Report 6077645-9 (Version None)
Quarter: 2009Q1

REPORT INFORMATION
  Report Type: 
  Country: None (occurrence: None)
  Receive Date: 20090213
  Receipt Date: 20090205
  Transmission Date: 20090719
  Serious: Yes (Other)
  Sender: FDA-Public Use
  Company Number: GB-GILEAD-2009-0019993

PATIENT
  Sex: Male
  Weight: 84 kg

DRUGS (3)
  1. ATRIPLA [Suspect]
     Indication: HIV INFECTION
     Dates: start: 20080715
  2. COTRIMOXAZOLE [Concomitant]
     Indication: PROPHYLAXIS
  3. NORTRIPTYLINE HCL [Concomitant]
     Indication: NEUROPATHY PERIPHERAL

REACTIONS (1)
  - VIRAL LOAD INCREASED [None]
